FAERS Safety Report 7283525-3 (Version None)
Quarter: 2011Q1

REPORT INFORMATION
  Report Type: 
  Country: None (occurrence: None)
  Receive Date: 20110209
  Receipt Date: 20110201
  Transmission Date: 20110831
  Serious: Yes (Other)
  Sender: FDA-Public Use
  Company Number: FR-B.I. PHARMACEUTICALS,INC./RIDGEFIELD-2011-FF-00094FF

PATIENT
  Sex: Male
  Weight: 89 kg

DRUGS (8)
  1. MACROGOL [Concomitant]
     Dates: start: 20100813
  2. KETOPROFEN [Concomitant]
     Dates: start: 20100813
  3. FOLIC ACID [Concomitant]
     Dates: start: 20100813
  4. PANTOPRAZOLE [Concomitant]
     Dates: start: 20100813
  5. FERROUS FUMARATE [Concomitant]
     Dates: start: 20100813
  6. PRADAXA [Suspect]
     Route: 048
     Dates: start: 20100813, end: 20100815
  7. XARELTO [Suspect]
     Indication: THROMBOSIS PROPHYLAXIS
     Dosage: 10 MG
     Route: 048
     Dates: start: 20100809, end: 20100812
  8. ACETAMINOPHEN [Concomitant]
     Dates: start: 20100813

REACTIONS (1)
  - DEEP VEIN THROMBOSIS [None]
